FAERS Safety Report 22113884 (Version 1)
Quarter: 2023Q1

REPORT INFORMATION
  Report Type: Spontaneous
  Country: JP (occurrence: JP)
  Receive Date: 20230320
  Receipt Date: 20230320
  Transmission Date: 20230418
  Serious: Yes (Hospitalization, Other)
  Sender: FDA-Public Use
  Company Number: JP-TAKEDA-2023TJP001301AA

PATIENT
  Age: 79 Year
  Sex: Male

DRUGS (1)
  1. ROZEREM [Suspect]
     Active Substance: RAMELTEON
     Indication: Hepatic cirrhosis
     Dosage: UNK
     Route: 065

REACTIONS (3)
  - Hepatic encephalopathy [Unknown]
  - Labelled drug-disease interaction medication error [Unknown]
  - Contraindicated product prescribed [Unknown]
